FAERS Safety Report 6752659-1 (Version None)
Quarter: 2010Q2

REPORT INFORMATION
  Report Type: 
  Country: None (occurrence: None)
  Receive Date: 20100601
  Receipt Date: 20100601
  Transmission Date: 20101027
  Serious: Yes (Other)
  Sender: FDA-Public Use
  Company Number: None

PATIENT
  Age: 32 Year
  Sex: Female

DRUGS (3)
  1. MAGNESIUM SULFATE [Suspect]
     Indication: PREMATURE LABOUR
     Dosage: 4 MG ONCE IV BOLUS
     Route: 040
     Dates: start: 20100424, end: 20100424
  2. VANCOMYCIN [Concomitant]
  3. BETAMETHASONE [Concomitant]

REACTIONS (2)
  - DYSPNOEA [None]
  - LETHARGY [None]
